FAERS Safety Report 7657753-9 (Version None)
Quarter: 2011Q3

REPORT INFORMATION
  Report Type: 
  Country: None (occurrence: None)
  Receive Date: 20110805
  Receipt Date: 20110802
  Transmission Date: 20111222
  Serious: Yes (Other)
  Sender: FDA-Public Use
  Company Number: NL-AMGEN-NLDSP2011039219

PATIENT
  Age: 70 Year
  Sex: Male

DRUGS (4)
  1. TEMAZEPAM [Concomitant]
     Dosage: 20 MG, 1X/DAY
  2. ENBREL [Suspect]
     Indication: PRODUCT USED FOR UNKNOWN INDICATION
     Dosage: 50 MG, WEEKLY
     Dates: start: 20110407
  3. OXAZEPAM [Concomitant]
     Dosage: 50 MG, 2X/DAY
  4. FOSINOPRIL SODIUM [Concomitant]
     Dosage: 10 MG, 1X/DAY

REACTIONS (1)
  - PAIN IN EXTREMITY [None]
